FAERS Safety Report 14080090 (Version 1)
Quarter: 2017Q4

REPORT INFORMATION
  Report Type: Spontaneous
  Country: US (occurrence: US)
  Receive Date: 20171012
  Receipt Date: 20171012
  Transmission Date: 20180321
  Serious: No
  Sender: FDA-Public Use
  Company Number: US-MYLANLABS-2017M1028762

PATIENT
  Sex: Male
  Weight: 95 kg

DRUGS (1)
  1. ZONALON [Suspect]
     Active Substance: DOXEPIN HYDROCHLORIDE
     Indication: NEUROPATHY PERIPHERAL
     Dosage: 5 %, QD
     Route: 061

REACTIONS (2)
  - Product use in unapproved indication [Unknown]
  - Therapeutic response unexpected [Unknown]
